FAERS Safety Report 6948218-8 (Version None)
Quarter: 2010Q3

REPORT INFORMATION
  Report Type: 
  Country: None (occurrence: None)
  Receive Date: 20100828
  Receipt Date: 20091022
  Transmission Date: 20110219
  Serious: No
  Sender: FDA-Public Use
  Company Number: US-ABBOTT-09P-163-0604927-00

PATIENT
  Sex: Male
  Weight: 95.34 kg

DRUGS (8)
  1. NIASPAN [Suspect]
     Indication: BLOOD CHOLESTEROL INCREASED
     Dates: start: 20091001
  2. NIASPAN [Suspect]
     Dates: start: 20091001, end: 20091001
  3. MICARDIS HCT [Concomitant]
     Indication: HYPERTENSION
  4. GLUCOSAMINE [Concomitant]
     Indication: ARTHROPATHY
  5. GLUCOSAMINE [Concomitant]
     Indication: PROPHYLAXIS
  6. ASPIRIN [Concomitant]
     Indication: ANTICOAGULANT THERAPY
  7. AVODART [Concomitant]
     Indication: BENIGN PROSTATIC HYPERPLASIA
  8. PRILOSEC [Concomitant]
     Indication: GASTROOESOPHAGEAL REFLUX DISEASE

REACTIONS (1)
  - BLOOD GLUCOSE INCREASED [None]
